FAERS Safety Report 4382117-3 (Version None)
Quarter: 2004Q2

REPORT INFORMATION
  Report Type: 
  Country: None (occurrence: None)
  Receive Date: 20040603
  Receipt Date: 20030408
  Transmission Date: 20050107
  Serious: Yes (Hospitalization)
  Sender: FDA-Public Use
  Company Number: 200313349US

PATIENT
  Sex: Female

DRUGS (3)
  1. HEPARIN-FRACTION, SODIUM SALT (LOVENOX) SOLUTION FOR INJECTION [Suspect]
     Indication: KNEE OPERATION
     Dosage: 30 MG Q12H
  2. HEPARIN-FRACTION, SODIUM SALT (LOVENOX) SOLUTION FOR INJECTION [Suspect]
     Indication: PROPHYLAXIS
     Dosage: 30 MG Q12H
  3. ASPIRIN [Concomitant]

REACTIONS (1)
  - HAEMATOMA [None]
